FAERS Safety Report 7433478-X (Version None)
Quarter: 2011Q2

REPORT INFORMATION
  Report Type: 
  Country: None (occurrence: None)
  Receive Date: 20110422
  Receipt Date: 20110105
  Transmission Date: 20111010
  Serious: No
  Sender: FDA-Public Use
  Company Number: US-MUTUAL PHARMACEUTICAL COMPANY, INC.-CLCY20110002

PATIENT
  Age: 45 Year
  Sex: Male
  Weight: 88.53 kg

DRUGS (4)
  1. ALLOPURINOL [Concomitant]
     Indication: GOUT
     Route: 065
  2. SIMVASTATIN [Concomitant]
     Indication: BLOOD CHOLESTEROL INCREASED
     Route: 065
  3. SYMBICORT [Concomitant]
     Indication: ASTHMA
  4. COLCRYS [Suspect]
     Indication: GOUT
     Route: 048
     Dates: start: 20110103, end: 20110104

REACTIONS (3)
  - DIARRHOEA [None]
  - NAUSEA [None]
  - DIZZINESS [None]
